FAERS Safety Report 9949134 (Version 4)
Quarter: 2014Q2

REPORT INFORMATION
  Report Type: Spontaneous
  Country: US (occurrence: US)
  Receive Date: 20140304
  Receipt Date: 20140402
  Transmission Date: 20141212
  Serious: Yes (Death)
  Sender: FDA-Public Use
  Company Number: US-CELGENEUS-163-20785-14023153

PATIENT
  Sex: Male

DRUGS (1)
  1. THALOMID [Suspect]
     Indication: PULMONARY FIBROSIS
     Dosage: 50 MILLIGRAM
     Route: 048
     Dates: start: 201306, end: 20140214

REACTIONS (1)
  - Pulmonary fibrosis [Fatal]
